FAERS Safety Report 7987678-0 (Version None)
Quarter: 2011Q4

REPORT INFORMATION
  Report Type: 
  Country: None (occurrence: None)
  Receive Date: 20111216
  Receipt Date: 20101122
  Transmission Date: 20120403
  Serious: Yes (Other)
  Sender: FDA-Public Use
  Company Number: US-BRISTOL-MYERS SQUIBB COMPANY-15351760

PATIENT
  Age: 77 Year
  Sex: Male

DRUGS (15)
  1. DEPAKOTE ER [Concomitant]
     Dates: end: 20100804
  2. PREVACID [Concomitant]
  3. ARICEPT [Concomitant]
  4. SEROQUEL [Suspect]
     Dates: start: 20091019, end: 20100804
  5. ABILIFY [Suspect]
     Indication: DEPRESSION
     Route: 048
     Dates: start: 20100527, end: 20100809
  6. RISPERDAL [Suspect]
     Indication: PARKINSONISM
     Dates: start: 20080826, end: 20081021
  7. RISPERDAL [Suspect]
     Indication: TREMOR
     Dates: start: 20080826, end: 20081021
  8. DEPAKOTE [Suspect]
     Dates: start: 20091130, end: 20100810
  9. DOXAZOSIN MESYLATE [Concomitant]
  10. LIPITOR [Concomitant]
  11. ATENOLOL [Concomitant]
  12. ALENDRONATE SODIUM [Concomitant]
  13. RISPERDAL [Suspect]
     Indication: MAJOR DEPRESSION
     Dates: start: 20080826, end: 20081021
  14. NORVASC [Concomitant]
  15. AVODART [Concomitant]

REACTIONS (1)
  - CATATONIA [None]
